FAERS Safety Report 6271276-3 (Version None)
Quarter: 2009Q3

REPORT INFORMATION
  Report Type: 
  Country: None (occurrence: None)
  Receive Date: 20090716
  Receipt Date: 20090716
  Transmission Date: 20100115
  Serious: No
  Sender: FDA-Public Use
  Company Number: None

PATIENT
  Age: 63 Year
  Sex: Female
  Weight: 127.0072 kg

DRUGS (1)
  1. ACTONEL [Suspect]
     Dosage: (1) PILL
     Dates: start: 20070801

REACTIONS (3)
  - ASTHENIA [None]
  - FEELING ABNORMAL [None]
  - MYALGIA [None]
